FAERS Safety Report 13876644 (Version 1)
Quarter: 2017Q3

REPORT INFORMATION
  Report Type: Spontaneous
  Country: FR (occurrence: FR)
  Receive Date: 20170817
  Receipt Date: 20170817
  Transmission Date: 20171127
  Serious: Yes (Other)
  Sender: FDA-Public Use
  Company Number: FR-BAYER-2017-156539

PATIENT
  Age: 19 Year
  Sex: Female

DRUGS (1)
  1. JAYDESS [Suspect]
     Active Substance: LEVONORGESTREL
     Indication: CONTRACEPTION
     Dosage: 14 MCG/24HR, CONT
     Route: 015
     Dates: start: 20141119, end: 20170513

REACTIONS (13)
  - Loss of libido [Unknown]
  - Vertigo [Unknown]
  - Tetany [Unknown]
  - Weight increased [Unknown]
  - Depression [Unknown]
  - Headache [Unknown]
  - Muscle spasms [Unknown]
  - Diffuse alopecia [Unknown]
  - Asthenia [Unknown]
  - Sleep disorder [Unknown]
  - Hot flush [Unknown]
  - Hyperhidrosis [Unknown]
  - Acne [Unknown]

NARRATIVE: CASE EVENT DATE: 201501
